FAERS Safety Report 4654077-9 (Version None)
Quarter: 2005Q2

REPORT INFORMATION
  Report Type: 
  Country: None (occurrence: None)
  Receive Date: 20050504
  Receipt Date: 20050421
  Transmission Date: 20051028
  Serious: Yes (Other)
  Sender: FDA-Public Use
  Company Number: 213822

PATIENT
  Age: 58 Year
  Sex: Female

DRUGS (6)
  1. MABTHERA (RITUXIMAB) CONC FOR SOLUTION FOR INFUSION [Suspect]
     Indication: B-CELL LYMPHOMA
     Dosage: 676 MG, INTRAVENOUS
     Route: 042
     Dates: start: 20040524, end: 20040707
  2. METHYL-GAG (MITOGUAZONE DIHYDROCHLORIDE) [Concomitant]
  3. IFOSFAMIDE [Concomitant]
  4. METHOTREXATE [Concomitant]
  5. ETOPSIDE (TOPOSIDE) [Concomitant]
  6. MESNA [Concomitant]

REACTIONS (2)
  - DEAFNESS NEUROSENSORY [None]
  - RHINITIS [None]
